FAERS Safety Report 15932726 (Version 2)
Quarter: 2019Q2

REPORT INFORMATION
  Report Type: Spontaneous
  Country: IT (occurrence: IT)
  Receive Date: 20190207
  Receipt Date: 20190604
  Transmission Date: 20190711
  Serious: Yes (Hospitalization)
  Sender: FDA-Public Use
  Company Number: IT-ASTRAZENECA-2019SE18485

PATIENT
  Age: 79 Year
  Sex: Female

DRUGS (14)
  1. QUETIAPINE. [Suspect]
     Active Substance: QUETIAPINE
     Indication: DELIRIUM
     Route: 048
     Dates: start: 20181123, end: 20181203
  2. FUROSEMIDE. [Concomitant]
     Active Substance: FUROSEMIDE
  3. DULOXETINE HYDROCHLORIDE. [Concomitant]
     Active Substance: DULOXETINE HYDROCHLORIDE
  4. FLECAINIDE [Concomitant]
     Active Substance: FLECAINIDE
  5. CALCIUM CARBONATE. [Concomitant]
     Active Substance: CALCIUM CARBONATE
  6. PANTOPRAZOLE [Concomitant]
     Active Substance: PANTOPRAZOLE
  7. SPIRONOLACTONE. [Concomitant]
     Active Substance: SPIRONOLACTONE
  8. CEFTRIAXONE. [Concomitant]
     Active Substance: CEFTRIAXONE
     Indication: SEPSIS
     Route: 042
     Dates: start: 20181109, end: 20181128
  9. PREDNISONE. [Concomitant]
     Active Substance: PREDNISONE
  10. FOLINA [FOLIC ACID] [Concomitant]
     Active Substance: FOLIC ACID
  11. COLECALCIFEROL [Concomitant]
     Active Substance: CHOLECALCIFEROL
  12. PREGABALIN. [Concomitant]
     Active Substance: PREGABALIN
  13. VITAMIN B NOS [Concomitant]
     Active Substance: VITAMIN B
  14. IRON [Concomitant]
     Active Substance: IRON

REACTIONS (3)
  - Neutrophilia [Recovered/Resolved]
  - Leukopenia [Recovered/Resolved]
  - Neutropenia [Recovered/Resolved]

NARRATIVE: CASE EVENT DATE: 20181126
